FAERS Safety Report 6698375-6 (Version None)
Quarter: 2010Q2

REPORT INFORMATION
  Report Type: 
  Country: None (occurrence: None)
  Receive Date: 20100427
  Receipt Date: 20100422
  Transmission Date: 20101027
  Serious: Yes (Hospitalization)
  Sender: FDA-Public Use
  Company Number: US-ASTRAZENECA-2010SE18102

PATIENT
  Age: 72 Year
  Sex: Male
  Weight: 85.7 kg

DRUGS (19)
  1. PULMICORT RESPULES [Suspect]
     Indication: ASTHMA
     Dosage: 1 MG DAILY, BID
     Route: 055
     Dates: start: 20050101
  2. METOPROLOL [Concomitant]
  3. ISOSORBIDE MONONITRATE [Concomitant]
  4. KLOR-CON [Concomitant]
  5. PLAVIX [Concomitant]
  6. ATENOLOL [Concomitant]
  7. ROPINIROLE [Concomitant]
  8. CLARITIN [Concomitant]
  9. COZAAR [Concomitant]
  10. FUROSEMIDE [Concomitant]
  11. FOMOTIDINE [Concomitant]
  12. PRAMIPEXOLE DIHYDROCHLORIDE [Concomitant]
  13. LEXAPRO [Concomitant]
  14. LIPITOR [Concomitant]
  15. THEOPHYLLINE [Concomitant]
  16. OXYGEN [Concomitant]
     Dosage: 2 L CONTINUOUSLY
  17. SPIRIVA [Concomitant]
  18. ALBUTEROL [Concomitant]
  19. BROVANA [Concomitant]

REACTIONS (7)
  - BLOOD GLUCOSE DECREASED [None]
  - CHEST PAIN [None]
  - COLONIC POLYP [None]
  - DIARRHOEA [None]
  - LOSS OF CONSCIOUSNESS [None]
  - PNEUMONIA [None]
  - WEIGHT DECREASED [None]
